FAERS Safety Report 5586088-3 (Version None)
Quarter: 2008Q1

REPORT INFORMATION
  Report Type: 
  Country: None (occurrence: None)
  Receive Date: 20080104
  Receipt Date: 20071221
  Transmission Date: 20080703
  Serious: Yes (Other)
  Sender: FDA-Public Use
  Company Number: 8028572

PATIENT
  Sex: Female

DRUGS (9)
  1. KEPPRA [Suspect]
     Indication: CONVULSION
     Dosage: 3000 MG/D TRP
     Route: 064
     Dates: start: 20070101, end: 20070816
  2. KEPPRA [Suspect]
     Indication: CONVULSION
     Dosage: 3500 MG/D; TRP
     Route: 064
     Dates: start: 20070816, end: 20070903
  3. LAMICTAL [Concomitant]
  4. LAMICTAL [Concomitant]
  5. LAMICTAL [Concomitant]
  6. PROCARDIA [Concomitant]
  7. FOLIC ACID [Concomitant]
  8. PRENATAL VITAMINS [Concomitant]
  9. BETAMETHASONE [Concomitant]

REACTIONS (3)
  - DRUG EXPOSURE DURING PREGNANCY [None]
  - FOETAL GROWTH RETARDATION [None]
  - PREMATURE BABY [None]
